FAERS Safety Report 12426718 (Version 1)
Quarter: 2016Q2

REPORT INFORMATION
  Report Type: Report from Study
  Country: CA (occurrence: CA)
  Receive Date: 20160601
  Receipt Date: 20160601
  Transmission Date: 20160815
  Serious: Yes (Death, Hospitalization, Other)
  Sender: FDA-Public Use
  Company Number: CA-GILEAD-2016-0210597

PATIENT
  Age: 79 Year
  Sex: Female

DRUGS (11)
  1. TYLENOL [Concomitant]
     Active Substance: ACETAMINOPHEN
  2. CANDESARTAN [Concomitant]
     Active Substance: CANDESARTAN
  3. FOLIC ACID. [Concomitant]
     Active Substance: FOLIC ACID
  4. CRATAEGUS                          /01349301/ [Concomitant]
  5. CHLORAMBUCIL [Concomitant]
     Active Substance: CHLORAMBUCIL
  6. CRESTOR [Concomitant]
     Active Substance: ROSUVASTATIN CALCIUM
  7. FISH OIL [Concomitant]
     Active Substance: FISH OIL
  8. FUROSEMIDE. [Concomitant]
     Active Substance: FUROSEMIDE
  9. IDELALISIB [Suspect]
     Active Substance: IDELALISIB
     Indication: CHRONIC LYMPHOCYTIC LEUKAEMIA
     Dosage: 150 MG, BID
     Route: 048
     Dates: start: 20160329, end: 201604
  10. METOPROLOL. [Concomitant]
     Active Substance: METOPROLOL
  11. VITAMIN SUPPLEMENTS [Concomitant]
     Active Substance: VITAMINS

REACTIONS (3)
  - Pneumonia [Unknown]
  - Death [Fatal]
  - Asthenia [Unknown]

NARRATIVE: CASE EVENT DATE: 20160419
